FAERS Safety Report 24413349 (Version 1)
Quarter: 2024Q4

REPORT INFORMATION
  Report Type: Spontaneous
  Country: CN (occurrence: CN)
  Receive Date: 20241008
  Receipt Date: 20241008
  Transmission Date: 20250115
  Serious: Yes (Hospitalization)
  Sender: VIRTUS PHARMACEUTICALS
  Company Number: CN-VIRTUS PHARMACEUTICALS, LLC-2024VTS00024

PATIENT
  Age: 38 Year
  Sex: Male

DRUGS (4)
  1. ACARBOSE [Suspect]
     Active Substance: ACARBOSE
     Indication: Type 2 diabetes mellitus
     Dosage: 100 MG, 3X/DAY
     Route: 048
  2. DAPAGLIFLOZIN [Suspect]
     Active Substance: DAPAGLIFLOZIN
     Indication: Type 2 diabetes mellitus
     Dosage: 10 MG, 1X/DAY [ALSO NOTED AS 12 MG]
     Route: 048
  3. GLYBURIDE [Concomitant]
     Active Substance: GLYBURIDE
     Dosage: ^XIAOKE PILLS^; INTERMITTENT USE
  4. DEGLUDEC [Concomitant]
     Dosage: 10 IU, 1X/DAY

REACTIONS (1)
  - Diabetic ketoacidosis [Recovered/Resolved]
